FAERS Safety Report 4701028-4 (Version None)
Quarter: 2005Q2

REPORT INFORMATION
  Report Type: 
  Country: None (occurrence: None)
  Receive Date: 20050624
  Receipt Date: 20050614
  Transmission Date: 20051028
  Serious: Yes (Hospitalization, Other)
  Sender: FDA-Public Use
  Company Number: 2005060644

PATIENT
  Age: 84 Year
  Sex: Female
  Weight: 56.6996 kg

DRUGS (13)
  1. BEXTRA [Suspect]
     Indication: ARTHRALGIA
     Dosage: 10 MG (10 MG, 1 IN 1 D), ORAL
     Route: 048
     Dates: start: 20030101, end: 20041101
  2. BEXTRA [Suspect]
     Indication: MONARTHRITIS
     Dosage: 10 MG (10 MG, 1 IN 1 D), ORAL
     Route: 048
     Dates: start: 20030101, end: 20041101
  3. DIPYRIDAMOLE [Concomitant]
  4. LEVOTHYROXINE SODIUM [Concomitant]
  5. DIGOXIN [Concomitant]
  6. FEXOFENADINE HYDROCHLORIDE [Concomitant]
  7. CETIRIZINE HCL [Concomitant]
  8. ACETYLSALICYLIC ACID SRT [Concomitant]
  9. CALCIUM (CALCIUM) [Concomitant]
  10. MULTI-VITAMINS [Concomitant]
  11. POLYCARBOPHIL CALCIUM         (POLYCARBOPHIL CALCIUM) [Concomitant]
  12. ALL OTHER THERAPEUTIC PRODUCTS [Concomitant]
  13. SUNSCREEN                    (BUTYL METHOXYDIBENZOYLMETHANE, OCTINOXAT [Concomitant]

REACTIONS (5)
  - HAND DERMATITIS [None]
  - IMMUNE SYSTEM DISORDER [None]
  - NASAL DISORDER [None]
  - PALPITATIONS [None]
  - SYSTEMIC LUPUS ERYTHEMATOSUS [None]
